FAERS Safety Report 10421852 (Version 4)
Quarter: 2015Q2

REPORT INFORMATION
  Report Type: Spontaneous
  Country: JP (occurrence: JP)
  Receive Date: 20140901
  Receipt Date: 20150622
  Transmission Date: 20150821
  Serious: Yes (Death)
  Sender: FDA-Public Use
  Company Number: JP-JNJFOC-20140822226

PATIENT
  Age: 38 Year
  Sex: Male

DRUGS (16)
  1. TRYPTANOL [Suspect]
     Active Substance: AMITRIPTYLINE
     Indication: ROAD TRAFFIC ACCIDENT
     Route: 048
  2. ZETIA [Concomitant]
     Active Substance: EZETIMIBE
     Indication: PRODUCT USED FOR UNKNOWN INDICATION
     Route: 048
  3. REBAMIPIDE [Concomitant]
     Active Substance: REBAMIPIDE
     Indication: PRODUCT USED FOR UNKNOWN INDICATION
     Route: 048
  4. DUROTEP MT [Suspect]
     Active Substance: FENTANYL
     Indication: PAIN
     Route: 062
     Dates: start: 20120928
  5. VOLTAREN [Concomitant]
     Active Substance: DICLOFENAC SODIUM
     Indication: PRODUCT USED FOR UNKNOWN INDICATION
     Route: 065
  6. DUROTEP MT [Suspect]
     Active Substance: FENTANYL
     Indication: PAIN
     Route: 062
     Dates: start: 20120706
  7. TRAMCET [Suspect]
     Active Substance: ACETAMINOPHEN\TRAMADOL
     Indication: PAIN
     Route: 048
  8. RINLAXER [Suspect]
     Active Substance: CHLORPHENESIN CARBAMATE
     Indication: ROAD TRAFFIC ACCIDENT
     Route: 048
  9. METHYCOBAL [Concomitant]
     Active Substance: METHYLCOBALAMIN
     Indication: PRODUCT USED FOR UNKNOWN INDICATION
     Route: 065
  10. NEUROTROPIN [Concomitant]
     Active Substance: NEUROTROPIN
     Indication: PRODUCT USED FOR UNKNOWN INDICATION
     Route: 065
  11. MILTAX [Concomitant]
     Active Substance: VIDARABINE
     Indication: PRODUCT USED FOR UNKNOWN INDICATION
     Dosage: 18 SHEETS
     Route: 062
  12. DUROTEP MT [Suspect]
     Active Substance: FENTANYL
     Indication: PAIN
     Route: 062
     Dates: start: 20130802, end: 20130918
  13. DUROTEP MT [Suspect]
     Active Substance: FENTANYL
     Indication: PAIN
     Route: 062
     Dates: start: 20120831
  14. DUROTEP MT [Suspect]
     Active Substance: FENTANYL
     Indication: PAIN
     Route: 062
     Dates: start: 20120615
  15. TEGRETOL [Concomitant]
     Active Substance: CARBAMAZEPINE
     Indication: PRODUCT USED FOR UNKNOWN INDICATION
     Route: 048
  16. NEUROTROPIN [Concomitant]
     Active Substance: NEUROTROPIN
     Indication: PRODUCT USED FOR UNKNOWN INDICATION
     Route: 048

REACTIONS (1)
  - Sudden cardiac death [Fatal]

NARRATIVE: CASE EVENT DATE: 20130918
